FAERS Safety Report 8254689-X (Version None)
Quarter: 2012Q2

REPORT INFORMATION
  Report Type: 
  Country: None (occurrence: None)
  Receive Date: 20120403
  Receipt Date: 20120326
  Transmission Date: 20120825
  Serious: Yes (Hospitalization)
  Sender: FDA-Public Use
  Company Number: US-ELI_LILLY_AND_COMPANY-US201009007178

PATIENT
  Sex: Female

DRUGS (5)
  1. FORTEO [Suspect]
     Dosage: 20 UG, QD
     Route: 065
  2. FORTEO [Suspect]
     Dosage: 20 UG, DAILY (1/D)
  3. FORTEO [Suspect]
     Dosage: 20 UG, QD
     Dates: end: 20120101
  4. FORTEO [Suspect]
     Dosage: 20 UG, QD
  5. FORTEO [Suspect]
     Indication: OSTEOPOROSIS
     Dosage: 20 UG, DAILY (1/D)
     Dates: start: 20100910

REACTIONS (14)
  - PAIN [None]
  - NECK PAIN [None]
  - ARTHRALGIA [None]
  - BACK PAIN [None]
  - DIZZINESS [None]
  - MALAISE [None]
  - ABDOMINAL DISTENSION [None]
  - MUSCULOSKELETAL PAIN [None]
  - FALL [None]
  - FEMUR FRACTURE [None]
  - DIARRHOEA [None]
  - HEADACHE [None]
  - MASS [None]
  - INJECTION SITE HAEMATOMA [None]
